FAERS Safety Report 16873766 (Version 1)
Quarter: 2019Q4

REPORT INFORMATION
  Report Type: Spontaneous
  Country: IE (occurrence: IE)
  Receive Date: 20191001
  Receipt Date: 20191001
  Transmission Date: 20200122
  Serious: Yes (Other)
  Sender: FDA-Public Use
  Company Number: IE-CURIUM-201500322

PATIENT
  Sex: Female

DRUGS (2)
  1. SODIUM PERTECHNETATE TC 99M [Suspect]
     Active Substance: TECHNETIUM TC-99M SODIUM PERTECHNETATE
     Indication: RENAL SCAN
     Dosage: UNK
     Route: 065
     Dates: start: 20150312, end: 20150312
  2. TECHNESCAN MAG3 [Suspect]
     Active Substance: TECHNETIUM TC-99M TIATIDE
     Indication: RENAL SCAN
     Dosage: UNK
     Route: 065
     Dates: start: 20150312, end: 20150312

REACTIONS (3)
  - Hypotension [Unknown]
  - Feeling jittery [Unknown]
  - Syncope [Unknown]

NARRATIVE: CASE EVENT DATE: 20150312
